FAERS Safety Report 16949017 (Version 6)
Quarter: 2020Q1

REPORT INFORMATION
  Report Type: Spontaneous
  Country: BR (occurrence: BR)
  Receive Date: 20191023
  Receipt Date: 20200319
  Transmission Date: 20200409
  Serious: Yes (Disabling, Other)
  Sender: FDA-Public Use
  Company Number: NVSC2019BR011357

PATIENT
  Sex: Male
  Weight: 95 kg

DRUGS (6)
  1. AZORGA [Suspect]
     Active Substance: BRINZOLAMIDE\TIMOLOL MALEATE
     Indication: GLAUCOMA
     Dosage: 1 GTT, BID, ONE IN MORNING ONE AT NIGHT
     Route: 047
     Dates: start: 20190923, end: 20191016
  2. PURAN [Concomitant]
     Active Substance: LEVOTHYROXINE SODIUM
     Indication: HYPOTHYROIDISM
     Dosage: 1 DF, QD (MANY YEARS AGO)
     Route: 048
  3. ROSUVASTATINE [Concomitant]
     Active Substance: ROSUVASTATIN
     Indication: BLOOD CHOLESTEROL INCREASED
     Dosage: 1 DF, QD (MANY YEARS AGO)
     Route: 048
  4. AZORGA [Suspect]
     Active Substance: BRINZOLAMIDE\TIMOLOL MALEATE
     Dosage: 2 GTT, Q12H
     Route: 047
  5. AZORGA [Suspect]
     Active Substance: BRINZOLAMIDE\TIMOLOL MALEATE
     Dosage: 1 GTT, BID, ONE IN MORNING ONE AT NIGHT
     Route: 047
     Dates: start: 20190923, end: 20191016
  6. OLMESARTANA + HIDROCLOROTIAZIDA [Concomitant]
     Active Substance: HYDROCHLOROTHIAZIDE\OLMESARTAN MEDOXOMIL
     Indication: HYPERTENSION
     Dosage: 1 DF, QD (MANY YEARS AGO)
     Route: 048

REACTIONS (6)
  - Hypoacusis [Not Recovered/Not Resolved]
  - Hypertension [Unknown]
  - Cataract [Not Recovered/Not Resolved]
  - Amnesia [Not Recovered/Not Resolved]
  - Product packaging quantity issue [Unknown]
  - Memory impairment [Not Recovered/Not Resolved]
